FAERS Safety Report 4949429-3 (Version None)
Quarter: 2006Q1

REPORT INFORMATION
  Report Type: 
  Country: None (occurrence: None)
  Receive Date: 20060315
  Receipt Date: 20060302
  Transmission Date: 20060701
  Serious: Yes (Other)
  Sender: FDA-Public Use
  Company Number: 2006032789

PATIENT
  Sex: Male
  Weight: 84.8226 kg

DRUGS (2)
  1. CELEBREX [Suspect]
     Indication: ARTHRITIS
     Dosage: UNK (QD INTERVAL: EVERY DAY)
  2. BEXTRA [Suspect]
     Indication: ARTHRITIS
     Dosage: UNK (QD INTERVAL: EVERY DAY)

REACTIONS (9)
  - COOMBS TEST POSITIVE [None]
  - HERPES ZOSTER [None]
  - HYPERTENSION [None]
  - HYPOAESTHESIA [None]
  - LUNG NEOPLASM MALIGNANT [None]
  - MYOCARDIAL INFARCTION [None]
  - NERVE INJURY [None]
  - PARAESTHESIA [None]
  - SPINAL CORD DISORDER [None]
